FAERS Safety Report 8713128 (Version 4)
Quarter: 2014Q2

REPORT INFORMATION
  Report Type: Report from Study
  Country: US (occurrence: US)
  Receive Date: 20120808
  Receipt Date: 20140404
  Transmission Date: 20141212
  Serious: Yes (Death)
  Sender: FDA-Public Use
  Company Number: US-CELGENEUS-163-21880-12080329

PATIENT
  Age: 74 Year
  Sex: Male
  Weight: 82.4 kg

DRUGS (28)
  1. REVLIMID [Suspect]
     Indication: PLASMA CELL MYELOMA
     Route: 048
     Dates: start: 20110121, end: 20110519
  2. REVLIMID [Suspect]
     Dosage: 25 MILLIGRAM
     Route: 048
     Dates: start: 20110815, end: 20120709
  3. CARFILZOMIB [Suspect]
     Indication: PLASMA CELL MYELOMA
     Dosage: 38 MILLIGRAM
     Route: 065
     Dates: start: 20110815, end: 20120730
  4. CARFILZOMIB [Suspect]
     Route: 065
     Dates: start: 20110822
  5. CARFILZOMIB [Suspect]
     Route: 065
     Dates: start: 20110912
  6. CARFILZOMIB [Suspect]
     Route: 065
     Dates: start: 20111205
  7. CARFILZOMIB [Suspect]
     Route: 065
     Dates: start: 20120103
  8. CARFILZOMIB [Suspect]
     Route: 065
     Dates: start: 20120227
  9. CARFILZOMIB [Suspect]
     Route: 065
     Dates: start: 20120423, end: 20120730
  10. DEXAMETHASONE [Suspect]
     Indication: PLASMA CELL MYELOMA
     Dosage: 40 MILLIGRAM
     Route: 065
     Dates: start: 20110815
  11. DEXAMETHASONE [Suspect]
     Route: 065
     Dates: start: 20111128
  12. DEXAMETHASONE [Suspect]
     Route: 065
     Dates: start: 20111205
  13. DEXAMETHASONE [Suspect]
     Route: 065
     Dates: start: 20120402, end: 20120730
  14. DEXAMETHASONE [Suspect]
     Route: 065
     Dates: start: 20120716, end: 20120730
  15. CALCIUM [Concomitant]
     Indication: HYPOCALCAEMIA
     Dosage: 1200 MILLIGRAM
     Route: 048
     Dates: start: 20111220
  16. CARVEDILOL [Concomitant]
     Indication: ATRIAL FIBRILLATION
     Dosage: 6.25 MILLIGRAM
     Route: 048
     Dates: start: 20110210
  17. CARVEDILOL [Concomitant]
     Indication: HYPERTENSION
  18. COMPAZINE [Concomitant]
     Indication: PROPHYLAXIS OF NAUSEA AND VOMITING
     Dosage: 60 MILLIGRAM
     Route: 065
     Dates: start: 20110815
  19. LASIX [Concomitant]
     Indication: OEDEMA PERIPHERAL
     Dosage: 40 MILLIGRAM
     Route: 048
     Dates: start: 20120130
  20. LASIX [Concomitant]
     Indication: DYSPNOEA
  21. METFORMIN [Concomitant]
     Indication: TYPE 2 DIABETES MELLITUS
     Dosage: 2000 MILLIGRAM
     Route: 048
     Dates: start: 20101123
  22. OMEPRAZOLE [Concomitant]
     Indication: DRUG THERAPY
     Dosage: 20 MILLIGRAM
     Route: 048
     Dates: start: 20110813
  23. POTASSIUM CHLORIDE [Concomitant]
     Indication: PROPHYLAXIS
     Dosage: 20 MILLIEQUIVALENTS
     Route: 048
     Dates: start: 20120130
  24. VALACYCLOVIR [Concomitant]
     Indication: ANTIVIRAL PROPHYLAXIS
     Dosage: 500 MILLIGRAM
     Route: 048
     Dates: start: 20110813
  25. VICODIN [Concomitant]
     Indication: BACK PAIN
     Dosage: 5/500MG
     Route: 048
     Dates: start: 20110815
  26. WARFARIN [Concomitant]
     Indication: ANTICOAGULANT THERAPY
     Dosage: 10 MILLIGRAM
     Route: 048
     Dates: start: 20110608
  27. WARFARIN [Concomitant]
     Indication: ANTIPLATELET THERAPY
  28. ZOMETA [Concomitant]
     Indication: PROPHYLAXIS
     Route: 041
     Dates: start: 20110318

REACTIONS (1)
  - Cardiac arrest [Fatal]
